FAERS Safety Report 12294216 (Version 1)
Quarter: 2016Q2

REPORT INFORMATION
  Report Type: Spontaneous
  Country: US (occurrence: None)
  Receive Date: 20160421
  Receipt Date: 20160421
  Transmission Date: 20160815
  Serious: Yes (Other)
  Sender: FDA-Public Use
  Company Number: US-ALSI-201600088

PATIENT
  Age: 16 Year
  Sex: Female

DRUGS (6)
  1. BUSPIRONE [Suspect]
     Active Substance: BUSPIRONE HYDROCHLORIDE
  2. SEVOFLURANE. [Concomitant]
     Active Substance: SEVOFLURANE
  3. PROPOFOL. [Concomitant]
     Active Substance: PROPOFOL
  4. NITROUS OXIDE. [Suspect]
     Active Substance: NITROUS OXIDE
     Indication: ANXIETY
     Dosage: 50 % TOTAL
  5. MIDAZOLAM [Concomitant]
     Active Substance: MIDAZOLAM\MIDAZOLAM HYDROCHLORIDE
  6. FLUOXETINE [Suspect]
     Active Substance: FLUOXETINE HYDROCHLORIDE

REACTIONS (2)
  - Drug interaction [None]
  - Serotonin syndrome [None]
